FAERS Safety Report 5794249-3 (Version None)
Quarter: 2008Q2

REPORT INFORMATION
  Report Type: 
  Country: None (occurrence: None)
  Receive Date: 20080625
  Receipt Date: 20080617
  Transmission Date: 20081010
  Serious: Yes (Hospitalization)
  Sender: FDA-Public Use
  Company Number: 163-21880-08060988

PATIENT
  Age: 66 Year
  Sex: Male
  Weight: 70.9 kg

DRUGS (6)
  1. REVLIMID [Suspect]
     Indication: MULTIPLE MYELOMA
     Dosage: 25 MG, QD ON DAYS 1-21, EVERY 28
     Dates: start: 20060322, end: 20060331
  2. DEXAMETHASONE TAB [Suspect]
     Indication: MULTIPLE MYELOMA
     Dosage: 40 MG,QD ON DAYS 1,8,15, AND 22,Q 28 DAYS,ORAL
     Route: 048
     Dates: start: 20060322, end: 20060329
  3. ALLOPURINOL [Concomitant]
  4. BACTRIM [Concomitant]
  5. NEXIUM [Concomitant]
  6. ZOMETA [Concomitant]

REACTIONS (6)
  - DEHYDRATION [None]
  - HEADACHE [None]
  - NAUSEA [None]
  - PHOTOPHOBIA [None]
  - PITUITARY HAEMORRHAGE [None]
  - VOMITING [None]
